FAERS Safety Report 13309233 (Version 1)
Quarter: 2017Q1

REPORT INFORMATION
  Report Type: Spontaneous
  Country: US (occurrence: US)
  Receive Date: 20170309
  Receipt Date: 20170309
  Transmission Date: 20170428
  Serious: No
  Sender: FDA-Public Use
  Company Number: US-JNJFOC-20170210884

PATIENT
  Sex: Female
  Weight: 55.34 kg

DRUGS (3)
  1. NORGESTIMATE/ETHYLESTARDIOL [Suspect]
     Active Substance: ETHINYL ESTRADIOL\NORGESTIMATE
     Indication: CONTRACEPTION
     Route: 065
     Dates: start: 2016
  2. ZOLOFT [Concomitant]
     Active Substance: SERTRALINE HYDROCHLORIDE
     Route: 065
  3. ORTHO TRI CYCLEN LO [Concomitant]
     Active Substance: ETHINYL ESTRADIOL\NORGESTIMATE
     Indication: CONTRACEPTION
     Route: 065
     Dates: start: 2014, end: 201603

REACTIONS (7)
  - Amenorrhoea [Unknown]
  - Migraine [Unknown]
  - Diplopia [Unknown]
  - Fear of disease [Unknown]
  - Product substitution issue [None]
  - Weight increased [Unknown]
  - Hypoaesthesia [Unknown]

NARRATIVE: CASE EVENT DATE: 2016
